FAERS Safety Report 7352906-1 (Version None)
Quarter: 2011Q1

REPORT INFORMATION
  Report Type: 
  Country: None (occurrence: None)
  Receive Date: 20110315
  Receipt Date: 20110307
  Transmission Date: 20110831
  Serious: Yes (Other)
  Sender: FDA-Public Use
  Company Number: FI-ROCHE-763981

PATIENT

DRUGS (6)
  1. IRINOTECAN HYDROCHLORIDE [Suspect]
     Route: 065
  2. FLUOROURACIL [Suspect]
     Route: 065
  3. FOLINIC ACID [Suspect]
     Route: 065
  4. BEVACIZUMAB [Suspect]
     Dosage: 5 MG/KG ONCE PER 2 WEEKS OR 7.5 MG/KG PER 3 WEEKS, FORM: INFUSION.
     Route: 065
  5. CAPECITABINE [Suspect]
     Route: 065
  6. OXALIPLATIN [Suspect]
     Route: 065

REACTIONS (5)
  - MYOCARDIAL ISCHAEMIA [None]
  - INTESTINAL PERFORATION [None]
  - PROTEINURIA [None]
  - EMBOLISM VENOUS [None]
  - HYPERTENSION [None]
